FAERS Safety Report 9427775 (Version 1)
Quarter: 2013Q3

REPORT INFORMATION
  Report Type: Spontaneous
  Country: US (occurrence: US)
  Receive Date: 20130730
  Receipt Date: 20130730
  Transmission Date: 20140515
  Serious: No
  Sender: FDA-Public Use
  Company Number: US-ABBOTT-12P-163-0990860-00

PATIENT
  Age: 60 Year
  Sex: Male

DRUGS (3)
  1. NIASPAN (COATED) [Suspect]
  2. ATORVASTATIN [Concomitant]
     Indication: PRODUCT USED FOR UNKNOWN INDICATION
  3. COUMADIN [Concomitant]
     Indication: PRODUCT USED FOR UNKNOWN INDICATION

REACTIONS (3)
  - Low density lipoprotein increased [Unknown]
  - Blood triglycerides increased [Unknown]
  - Platelet count decreased [Unknown]
